FAERS Safety Report 8403742-6 (Version None)
Quarter: 2012Q2

REPORT INFORMATION
  Report Type: 
  Country: None (occurrence: None)
  Receive Date: 20120601
  Receipt Date: 20110818
  Transmission Date: 20120825
  Serious: No
  Sender: FDA-Public Use
  Company Number: US-NOVEN-11US003000

PATIENT
  Age: 15 Year
  Sex: Male
  Weight: 46.712 kg

DRUGS (1)
  1. DAYTRANA [Suspect]
     Indication: ATTENTION DEFICIT/HYPERACTIVITY DISORDER
     Dosage: 30 MG, QD
     Route: 062
     Dates: start: 20110501

REACTIONS (5)
  - LISTLESS [None]
  - SPEECH DISORDER [None]
  - ABDOMINAL PAIN UPPER [None]
  - PERSONALITY CHANGE [None]
  - DECREASED APPETITE [None]
